FAERS Safety Report 11390204 (Version 1)
Quarter: 2015Q3

REPORT INFORMATION
  Report Type: Spontaneous
  Country: US (occurrence: None)
  Receive Date: 20150813
  Receipt Date: 20150813
  Transmission Date: 20151125
  Serious: Yes (Hospitalization)
  Sender: FDA-Public Use
  Company Number: USW201508-000214

PATIENT
  Age: 51 Year
  Sex: Female
  Weight: 83.91 kg

DRUGS (5)
  1. APOKYN [Suspect]
     Active Substance: APOMORPHINE HYDROCHLORIDE
     Indication: PARKINSON^S DISEASE
     Dosage: 2-3 TIMES A DAY
     Dates: start: 20150709, end: 20150725
  2. CYMBALTA (DULOXETINE HCL) [Concomitant]
  3. CARBIDOPA/LEVODOPA (CARBIDOPA, LEVODOPA) [Concomitant]
  4. LORTAB (ACETAMINOPHEN, HYDROCODONE) [Concomitant]
  5. REQUIP (ROPINIROLE HCL) [Concomitant]

REACTIONS (3)
  - Hyperacusis [None]
  - Photophobia [None]
  - Migraine [None]

NARRATIVE: CASE EVENT DATE: 20150716
